FAERS Safety Report 4883414-5 (Version None)
Quarter: 2006Q1

REPORT INFORMATION
  Report Type: 
  Country: None (occurrence: None)
  Receive Date: 20060118
  Receipt Date: 20050324
  Transmission Date: 20060701
  Serious: No
  Sender: FDA-Public Use
  Company Number: MK200503-0308-1

PATIENT
  Age: 53 Year
  Sex: Male

DRUGS (1)
  1. NEUTROSPEC [Suspect]
     Indication: INFECTION
     Dosage: 20 MCI, ONE TIME, IV
     Route: 042
     Dates: start: 20050315, end: 20050315

REACTIONS (2)
  - DYSPNOEA [None]
  - INJECTION SITE PRURITUS [None]
